FAERS Safety Report 10195122 (Version 1)
Quarter: 2014Q2

REPORT INFORMATION
  Report Type: Spontaneous
  Country: IN (occurrence: IN)
  Receive Date: 20140526
  Receipt Date: 20140526
  Transmission Date: 20141212
  Serious: Yes (Death, Hospitalization)
  Sender: FDA-Public Use
  Company Number: IN-009507513-1405IND010443

PATIENT
  Age: 48 Year
  Sex: Male

DRUGS (1)
  1. VIRAFERON [Suspect]
     Indication: HEPATITIS C
     Dosage: 120 MG, QW
     Route: 058

REACTIONS (2)
  - Jaundice [Fatal]
  - Abdominal pain [Unknown]
